FAERS Safety Report 12282976 (Version 2)
Quarter: 2016Q3

REPORT INFORMATION
  Report Type: Spontaneous
  Country: FI (occurrence: FI)
  Receive Date: 20160419
  Receipt Date: 20160822
  Transmission Date: 20161109
  Serious: Yes (Other)
  Sender: FDA-Public Use
  Company Number: FI-ELI_LILLY_AND_COMPANY-FI201604004510

PATIENT
  Sex: Female

DRUGS (7)
  1. ZYPADHERA [Interacting]
     Active Substance: OLANZAPINE PAMOATE
     Dosage: 300 MG, EVERY 3 WEEKS
     Route: 030
  2. OLANZAPINE. [Interacting]
     Active Substance: OLANZAPINE
     Dosage: 5 MG, BID
  3. OLANZAPINE. [Interacting]
     Active Substance: OLANZAPINE
     Indication: PRODUCT USED FOR UNKNOWN INDICATION
     Dosage: 5 MG, BID
     Route: 048
  4. OLANZAPINE. [Interacting]
     Active Substance: OLANZAPINE
     Dosage: 5 MG, TID
     Route: 048
  5. SERDOLECT [Interacting]
     Active Substance: SERTINDOLE
     Indication: PRODUCT USED FOR UNKNOWN INDICATION
     Dosage: 16 MG, QD
     Route: 065
  6. SERDOLECT [Interacting]
     Active Substance: SERTINDOLE
     Dosage: 12 MG, UNKNOWN
     Route: 065
  7. ZYPADHERA [Suspect]
     Active Substance: OLANZAPINE PAMOATE
     Indication: PRODUCT USED FOR UNKNOWN INDICATION
     Dosage: 300 MG, EVERY 4 WEEKS
     Route: 030

REACTIONS (16)
  - Mania [Recovered/Resolved]
  - Drug interaction [Unknown]
  - Gait disturbance [Recovered/Resolved]
  - Mental disorder [Recovered/Resolved]
  - Psychotic disorder [Recovered/Resolved]
  - Anxiety [Recovered/Resolved]
  - Musculoskeletal disorder [Recovered/Resolved]
  - Agitation [Recovered/Resolved]
  - Incoherent [Recovered/Resolved]
  - Posture abnormal [Recovered/Resolved]
  - Dysarthria [Recovered/Resolved]
  - Irritability [Recovered/Resolved]
  - Prescribed overdose [Unknown]
  - Dystonia [Recovered/Resolved]
  - Alcohol interaction [Unknown]
  - Logorrhoea [Recovered/Resolved]
